FAERS Safety Report 4315172-7 (Version None)
Quarter: 2004Q1

REPORT INFORMATION
  Report Type: 
  Country: None (occurrence: None)
  Receive Date: 20040310
  Receipt Date: 20040224
  Transmission Date: 20041129
  Serious: Yes (Hospitalization)
  Sender: FDA-Public Use
  Company Number: US-JNJFOC-20040205908

PATIENT
  Age: 56 Year
  Sex: Female

DRUGS (18)
  1. INFLIXIMAB (INFLIXIMAB, RECOMBINANT) LYOPHILIZED POWDER [Suspect]
     Indication: RHEUMATOID ARTHRITIS
     Dosage: INTRAVENOUS
     Route: 042
     Dates: start: 20000727, end: 20000727
  2. ASACOL [Concomitant]
  3. ASPIRIN [Concomitant]
  4. ATENOLOL [Concomitant]
  5. CALCIUM (CALCIUM) [Concomitant]
  6. DARVOCET [Concomitant]
  7. FOLIC CID (FOLIC ACID) [Concomitant]
  8. FUROSEMIDE [Concomitant]
  9. METHOTREXATE (METYHOTREXATE) [Concomitant]
  10. PREMARIN [Concomitant]
  11. PRILOSEC [Concomitant]
  12. SPIRONOLACTONE [Concomitant]
  13. TRAZODONE HCL [Concomitant]
  14. ULTRAM [Concomitant]
  15. ZOLOFT [Concomitant]
  16. LIPITOR [Concomitant]
  17. LOPID [Concomitant]
  18. GLUCOVANCE (GLIBOMET) [Concomitant]

REACTIONS (2)
  - CORONARY ARTERY THROMBOSIS [None]
  - MYOCARDIAL INFARCTION [None]
